FAERS Safety Report 4786786-5 (Version None)
Quarter: 2005Q4

REPORT INFORMATION
  Report Type: 
  Country: None (occurrence: None)
  Receive Date: 20051004
  Receipt Date: 20050830
  Transmission Date: 20060501
  Serious: Yes (Hospitalization)
  Sender: FDA-Public Use
  Company Number: JP-SP-2005-01713

PATIENT
  Age: 80 Year
  Sex: Male

DRUGS (1)
  1. IMMUCYST [Suspect]
     Indication: BLADDER CANCER
     Route: 043
     Dates: start: 20050808, end: 20050822

REACTIONS (3)
  - ANOREXIA [None]
  - BOVINE TUBERCULOSIS [None]
  - PYREXIA [None]
